FAERS Safety Report 9242065 (Version 2)
Quarter: 2013Q3

REPORT INFORMATION
  Report Type: Spontaneous
  Country: DK (occurrence: BE)
  Receive Date: 20130419
  Receipt Date: 20130726
  Transmission Date: 20140515
  Serious: Yes (Other)
  Sender: FDA-Public Use
  Company Number: BE-FRI-1000044480

PATIENT
  Age: 41 Year
  Sex: Female

DRUGS (5)
  1. ESCITALOPRAM [Suspect]
     Indication: DEPRESSION
     Dosage: 10-15 MG
     Route: 048
     Dates: start: 20110401, end: 20130417
  2. ESCITALOPRAM [Suspect]
     Dosage: 5 MG
     Route: 048
     Dates: start: 20130418, end: 20130515
  3. UNI-TRANXENE [Concomitant]
     Route: 048
     Dates: start: 201301
  4. NORTRILEN [Concomitant]
     Indication: DEPRESSION
     Dates: start: 20130408
  5. SOSTILAR [Concomitant]
     Indication: HYPERPROLACTINAEMIA
     Route: 048
     Dates: start: 20130329

REACTIONS (1)
  - Pituitary tumour benign [Not Recovered/Not Resolved]
